FAERS Safety Report 10176242 (Version 1)
Quarter: 2014Q2

REPORT INFORMATION
  Report Type: Spontaneous
  Country: US (occurrence: US)
  Receive Date: 20140516
  Receipt Date: 20140516
  Transmission Date: 20141212
  Serious: No
  Sender: FDA-Public Use
  Company Number: US-PFIZER INC-2014134247

PATIENT
  Age: 51 Year
  Sex: Female
  Weight: 99.8 kg

DRUGS (2)
  1. SERTRALINE HCL [Suspect]
     Indication: DEPRESSION
     Dosage: 25 MG, 1X/DAY
     Route: 048
     Dates: start: 2013, end: 2013
  2. PROZAC [Concomitant]
     Dosage: UNK

REACTIONS (1)
  - Drug ineffective [Unknown]
